FAERS Safety Report 21052071 (Version 2)
Quarter: 2022Q3

REPORT INFORMATION
  Report Type: Spontaneous
  Country: FR (occurrence: FR)
  Receive Date: 20220707
  Receipt Date: 20220720
  Transmission Date: 20221026
  Serious: Yes (Hospitalization, Other)
  Sender: FDA-Public Use
  Company Number: None

PATIENT
  Age: 27 Year
  Sex: Female

DRUGS (10)
  1. ONDANSETRON [Suspect]
     Active Substance: ONDANSETRON
     Indication: Product used for unknown indication
     Dosage: 8 MG, 1 TOTAL
     Route: 042
     Dates: start: 20211202, end: 20211202
  2. DEXAMETHASONE [Suspect]
     Active Substance: DEXAMETHASONE
     Indication: Product used for unknown indication
     Dosage: UNK
     Route: 065
     Dates: start: 20211202, end: 20211202
  3. TRANEXAMIC ACID [Suspect]
     Active Substance: TRANEXAMIC ACID
     Indication: Postpartum haemorrhage
     Dosage: 1 G, 1X
     Route: 042
     Dates: start: 20211202, end: 20211202
  4. CARBETOCIN [Suspect]
     Active Substance: CARBETOCIN
     Indication: Postpartum haemorrhage
     Dosage: 1 DF, 1X
     Route: 065
     Dates: start: 20211202, end: 20211202
  5. XYLOCAINE WITH EPINEPHRINE [Suspect]
     Active Substance: EPINEPHRINE BITARTRATE\LIDOCAINE HYDROCHLORIDE
     Indication: Anaesthesia
     Dosage: 20 MG, 1X
     Route: 065
     Dates: start: 20211202, end: 20211202
  6. KETAMINE [Suspect]
     Active Substance: KETAMINE
     Indication: Anaesthesia
     Dosage: 20 MG, 1X
     Route: 042
     Dates: start: 20211202, end: 20211202
  7. CEFAZOLIN SODIUM [Suspect]
     Active Substance: CEFAZOLIN SODIUM
     Indication: Prophylaxis
     Dosage: 2 G, 1 TOTAL
     Route: 042
     Dates: start: 20211202, end: 20211202
  8. LOVENOX [Concomitant]
     Active Substance: ENOXAPARIN SODIUM
     Indication: Thrombosis
     Dosage: 6000 IU, Q12H
     Route: 065
     Dates: start: 202110, end: 20211201
  9. FERROUS SULFATE [Concomitant]
     Active Substance: FERROUS SULFATE
     Indication: Product used for unknown indication
     Dosage: UNK
     Route: 065
  10. FOLIC ACID [Concomitant]
     Active Substance: FOLIC ACID
     Indication: Product used for unknown indication
     Route: 065

REACTIONS (3)
  - Bradycardia [Recovered/Resolved]
  - Generalised tonic-clonic seizure [Recovered/Resolved]
  - Rash [Recovered/Resolved]

NARRATIVE: CASE EVENT DATE: 20211202
